FAERS Safety Report 17325512 (Version 1)
Quarter: 2020Q1

REPORT INFORMATION
  Report Type: Spontaneous
  Country: US (occurrence: US)
  Receive Date: 20200127
  Receipt Date: 20200127
  Transmission Date: 20200409
  Serious: No
  Sender: FDA-Public Use
  Company Number: US-REGENERON PHARMACEUTICALS, INC.-2019-22250

PATIENT

DRUGS (4)
  1. BACLOFEN. [Suspect]
     Active Substance: BACLOFEN
     Indication: PRODUCT USED FOR UNKNOWN INDICATION
     Dosage: UNK
  2. BACLOFEN. [Suspect]
     Active Substance: BACLOFEN
     Dosage: UNK
  3. EYLEA [Suspect]
     Active Substance: AFLIBERCEPT
     Indication: NEOVASCULAR AGE-RELATED MACULAR DEGENERATION
     Dosage: UNK, FIRST DOSE IN THE LEFT EYE
     Route: 031
     Dates: start: 20190208
  4. EYLEA [Suspect]
     Active Substance: AFLIBERCEPT
     Dosage: UNK, FIRST DOSE IN RIGH EYE
     Route: 031
     Dates: start: 20190215, end: 20190215

REACTIONS (4)
  - Facial pain [Unknown]
  - Neck pain [Unknown]
  - Photopsia [Unknown]
  - Headache [Unknown]

NARRATIVE: CASE EVENT DATE: 20190217
